FAERS Safety Report 9749040 (Version 2)
Quarter: 2014Q1

REPORT INFORMATION
  Report Type: Spontaneous
  Country: US (occurrence: US)
  Receive Date: 20131212
  Receipt Date: 20140312
  Transmission Date: 20141002
  Serious: No
  Sender: FDA-Public Use
  Company Number: US-INCYTE CORPORATION-2013IN002100

PATIENT
  Age: 64 Year
  Sex: Female

DRUGS (8)
  1. JAKAFI [Suspect]
     Indication: MYELOFIBROSIS
     Dosage: 15 MG, BID
     Route: 048
     Dates: start: 201209
  2. LOSARTAN POTASSIUM [Concomitant]
     Dosage: 50 MG, UNK
  3. FUROSEMIDE [Concomitant]
     Dosage: 40 MG, UNK
  4. METOPROLOL TARTRATE [Concomitant]
     Dosage: 50 MG, UNK
  5. HYDROXYUREA [Concomitant]
     Dosage: 500 MG, UNK
  6. CLARITIN-D [Concomitant]
  7. ULORIC [Concomitant]
     Dosage: 80 MG, UNK
  8. ASPIRIN (E.C.) [Concomitant]
     Dosage: 81 MG, UNK

REACTIONS (1)
  - Hyperhidrosis [Unknown]
